FAERS Safety Report 6307885-2 (Version None)
Quarter: 2009Q3

REPORT INFORMATION
  Report Type: 
  Country: None (occurrence: None)
  Receive Date: 20090813
  Receipt Date: 20071120
  Transmission Date: 20100115
  Serious: Yes (Other)
  Sender: FDA-Public Use
  Company Number: US-ASTRAZENECA-2006UW11774

PATIENT
  Age: 19064 Day
  Sex: Female
  Weight: 73.9 kg

DRUGS (20)
  1. SEROQUEL [Suspect]
     Indication: DEPRESSION
     Route: 048
     Dates: start: 20020726
  2. SEROQUEL [Suspect]
     Indication: INSOMNIA
     Route: 048
     Dates: start: 20020726
  3. SEROQUEL [Suspect]
     Indication: BIPOLAR DISORDER
     Route: 048
     Dates: start: 20020726
  4. SEROQUEL [Suspect]
     Route: 048
  5. SEROQUEL [Suspect]
     Route: 048
  6. SEROQUEL [Suspect]
     Route: 048
  7. SEROQUEL [Suspect]
     Route: 048
  8. SEROQUEL [Suspect]
     Route: 048
  9. SEROQUEL [Suspect]
     Route: 048
  10. SEROQUEL [Suspect]
     Route: 048
  11. SEROQUEL [Suspect]
     Route: 048
  12. SEROQUEL [Suspect]
     Route: 048
  13. WELLBUTRIN [Concomitant]
  14. GLUCOTROL [Concomitant]
     Dates: start: 20041027
  15. MAXZIDE [Concomitant]
     Dates: start: 20060213
  16. HUMULIN R [Concomitant]
     Dates: start: 20060809
  17. NEURONTIN [Concomitant]
     Dosage: 600-2400 MG
     Dates: start: 20041027
  18. NEURONTIN [Concomitant]
  19. TOPAMAX [Concomitant]
     Dates: start: 20041027
  20. CLONIDINE [Concomitant]
     Route: 048
     Dates: start: 20041027

REACTIONS (4)
  - DIABETES MELLITUS [None]
  - DIABETES MELLITUS INADEQUATE CONTROL [None]
  - NEUROPATHY PERIPHERAL [None]
  - TYPE 2 DIABETES MELLITUS [None]
